FAERS Safety Report 8226109-2 (Version None)
Quarter: 2012Q1

REPORT INFORMATION
  Report Type: 
  Country: None (occurrence: None)
  Receive Date: 20120307
  Receipt Date: 20090622
  Transmission Date: 20120608
  Serious: No
  Sender: FDA-Public Use
  Company Number: PHEH2009US05758

PATIENT
  Age: 67 Year
  Sex: Male

DRUGS (10)
  1. ASPIRIN [Concomitant]
  2. AFINITOR [Suspect]
     Indication: RENAL CANCER
     Dosage: 10 MG, QD, ORAL
     Route: 048
     Dates: start: 20090505
  3. GABAPENTIN [Concomitant]
  4. COLACE (DOCUSATE SODIUM) [Concomitant]
  5. LORTAB [Concomitant]
  6. OXYCONTIN [Concomitant]
  7. LISINOPRIL [Concomitant]
  8. SOMA [Concomitant]
  9. ZOCOR [Concomitant]
  10. LANTUS [Concomitant]

REACTIONS (3)
  - CHAPPED LIPS [None]
  - LIP DRY [None]
  - BONE PAIN [None]
